FAERS Safety Report 6258555-0 (Version None)
Quarter: 2009Q3

REPORT INFORMATION
  Report Type: 
  Country: None (occurrence: None)
  Receive Date: 20090707
  Receipt Date: 20090624
  Transmission Date: 20100115
  Serious: Yes (Life-Threatening, Hospitalization)
  Sender: FDA-Public Use
  Company Number: DE-CVT-090409

PATIENT

DRUGS (2)
  1. RANEXA [Suspect]
     Indication: CORONARY ARTERY DISEASE
     Dosage: 1875 MG, SINGLE
     Route: 048
     Dates: start: 20090624, end: 20090624
  2. METOPROLOL                         /00376901/ [Suspect]
     Indication: DRUG USE FOR UNKNOWN INDICATION
     Dosage: 50 MG, QD
     Route: 048

REACTIONS (3)
  - APATHY [None]
  - BRADYCARDIA [None]
  - OVERDOSE [None]
